FAERS Safety Report 9265368 (Version 1)
Quarter: 2013Q2

REPORT INFORMATION
  Report Type: Spontaneous
  Country: US (occurrence: US)
  Receive Date: 20130430
  Receipt Date: 20130430
  Transmission Date: 20140414
  Serious: Yes (Hospitalization)
  Sender: FDA-Public Use
  Company Number: US-RB-052953-13

PATIENT
  Age: 58 Year
  Sex: Male

DRUGS (1)
  1. BUPRENORPHINE/NALOXONE UNSPECIFIED [Suspect]
     Indication: DRUG DEPENDENCE
     Route: 060

REACTIONS (3)
  - Vomiting [Not Recovered/Not Resolved]
  - Impaired gastric emptying [Not Recovered/Not Resolved]
  - Drug withdrawal syndrome [Not Recovered/Not Resolved]
